FAERS Safety Report 25745667 (Version 1)
Quarter: 2025Q3

REPORT INFORMATION
  Report Type: Spontaneous
  Country: US (occurrence: US)
  Receive Date: 20250901
  Receipt Date: 20250901
  Transmission Date: 20251020
  Serious: Yes (Other)
  Sender: pharmaAND
  Company Number: US-Pharmaand-2025000768

PATIENT
  Sex: Female

DRUGS (1)
  1. PEGASYS [Suspect]
     Active Substance: PEGINTERFERON ALFA-2A

REACTIONS (4)
  - Suicidal ideation [Unknown]
  - Stress [Unknown]
  - Confusional state [Unknown]
  - Fatigue [Unknown]
